FAERS Safety Report 6330483-1 (Version None)
Quarter: 2009Q3

REPORT INFORMATION
  Report Type: 
  Country: None (occurrence: None)
  Receive Date: 20090827
  Receipt Date: 20090224
  Transmission Date: 20100115
  Serious: No
  Sender: FDA-Public Use
  Company Number: A0770195A

PATIENT
  Age: 42 Year
  Sex: Female

DRUGS (4)
  1. ACYCLOVIR [Suspect]
     Indication: GENITAL HERPES
     Dosage: 500MG THREE TIMES PER DAY
     Route: 048
     Dates: start: 20080201
  2. VALTREX [Suspect]
     Indication: GENITAL HERPES
     Dosage: 1G THREE TIMES PER DAY
     Route: 048
     Dates: start: 20080901
  3. VITAMINS [Concomitant]
  4. KLONOPIN [Concomitant]

REACTIONS (1)
  - DRUG INEFFECTIVE [None]
